FAERS Safety Report 7133213-9 (Version None)
Quarter: 2010Q4

REPORT INFORMATION
  Report Type: 
  Country: None (occurrence: None)
  Receive Date: 20101202
  Receipt Date: 20101119
  Transmission Date: 20110411
  Serious: Yes (Hospitalization)
  Sender: FDA-Public Use
  Company Number: BR-ELI_LILLY_AND_COMPANY-BR201010002158

PATIENT
  Sex: Female
  Weight: 56 kg

DRUGS (16)
  1. PRASUGREL HYDROCHLORIDE [Suspect]
     Indication: ACUTE CORONARY SYNDROME
     Dosage: UNK, UNK
     Dates: start: 20090930
  2. ASPIRIN [Concomitant]
     Dosage: 200 MG, UNK
     Dates: start: 20090922, end: 20090926
  3. ASPIRIN [Concomitant]
     Dosage: 200 MG, UNK
     Dates: start: 20090927
  4. ASPIRIN [Concomitant]
     Dosage: 300 MG, UNK
     Dates: start: 20100212
  5. CLOPIDOGREL [Concomitant]
     Dosage: 75 MG, UNK
     Dates: start: 20090923
  6. CLOPIDOGREL [Concomitant]
     Dosage: 75 MG, UNK
  7. SINVASTATINA [Concomitant]
     Indication: HYPERLIPIDAEMIA
     Dates: start: 20060101
  8. BETAHISTINE [Concomitant]
     Indication: LABYRINTHITIS
     Dates: start: 20020101
  9. RIVOTRIL [Concomitant]
     Indication: PROPHYLAXIS
     Dates: start: 20080101
  10. SUSTRATE [Concomitant]
     Indication: PROPHYLAXIS
     Dates: start: 20100212
  11. ATENOLOL [Concomitant]
     Indication: PROPHYLAXIS
     Dates: start: 20090101
  12. SERTRALINA [Concomitant]
     Indication: PROPHYLAXIS
     Dates: start: 20090101
  13. CRESTOR [Concomitant]
     Indication: PROPHYLAXIS
     Dates: start: 19990101
  14. VASOGARD [Concomitant]
     Indication: PROPHYLAXIS
     Dates: start: 20090101
  15. SERETIDE [Concomitant]
     Indication: PROPHYLAXIS
     Dates: start: 20090101
  16. PANTOPRAZOLE SODIUM [Concomitant]
     Indication: PROPHYLAXIS
     Dates: start: 20100101

REACTIONS (1)
  - PULMONARY EMBOLISM [None]
